FAERS Safety Report 15331919 (Version 2)
Quarter: 2019Q3

REPORT INFORMATION
  Report Type: Spontaneous
  Country: US (occurrence: US)
  Receive Date: 20180829
  Receipt Date: 20190910
  Transmission Date: 20191004
  Serious: Yes (Hospitalization)
  Sender: FDA-Public Use
  Company Number: US-PFIZER INC-2018263782

PATIENT
  Age: 8 Year
  Sex: Female
  Weight: 26 kg

DRUGS (10)
  1. GENOTROPIN [Suspect]
     Active Substance: SOMATROPIN
     Dosage: 1 MG, DAILY
     Dates: start: 201306
  2. LEVOTHYROXINE. [Concomitant]
     Active Substance: LEVOTHYROXINE
     Indication: THYROID DISORDER
     Dosage: 67 UG, 1X/DAY
     Route: 048
  3. HYDROCORTISONE. [Concomitant]
     Active Substance: HYDROCORTISONE
     Indication: CORTISOL DEFICIENCY
     Dosage: 3 MG, 3X/DAY
     Route: 048
  4. GENOTROPIN [Suspect]
     Active Substance: SOMATROPIN
     Dosage: 1 MG, UNK
     Route: 058
  5. LEVETIRACETAM. [Concomitant]
     Active Substance: LEVETIRACETAM
     Indication: SEIZURE
     Dosage: 4 ML, 2X/DAY, ^100MG/ML; TAKES 4ML FOR A TOTAL OF 400MG BY MOUTH TWICE A DAY^
     Route: 048
  6. GENOTROPIN [Suspect]
     Active Substance: SOMATROPIN
     Dosage: UNK
  7. DESMOPRESSIN [Concomitant]
     Active Substance: DESMOPRESSIN
     Indication: DIABETES INSIPIDUS
     Dosage: 0.025 MG, 2X/DAY
     Route: 048
  8. MIRALAX [Concomitant]
     Active Substance: POLYETHYLENE GLYCOL 3350
     Indication: CONSTIPATION
     Dosage: 17 G, 1X/DAY
     Route: 048
  9. GENOTROPIN [Suspect]
     Active Substance: SOMATROPIN
     Indication: ENDOCRINE DISORDER
     Dosage: 1 ML, 1X/DAY, (1CC INJECTED ONCE A DAY AT NIGHT)
     Dates: start: 201204
  10. GENOTROPIN [Suspect]
     Active Substance: SOMATROPIN
     Dosage: 1 ML, 1X/DAY, (1CC INJECTED ONCE A DAY AT NIGHT)
     Dates: start: 201204

REACTIONS (6)
  - Device issue [Unknown]
  - Anaemia [Unknown]
  - Expired device used [Unknown]
  - Blood potassium increased [Unknown]
  - Shunt infection [Unknown]
  - Incorrect dose administered [Unknown]

NARRATIVE: CASE EVENT DATE: 20180415
